FAERS Safety Report 6210000-7 (Version None)
Quarter: 2009Q2

REPORT INFORMATION
  Report Type: 
  Country: None (occurrence: None)
  Receive Date: 20090601
  Receipt Date: 20090528
  Transmission Date: 20091009
  Serious: No
  Sender: FDA-Public Use
  Company Number: US-B.I. PHARMACEUTICALS,INC./RIDGEFIELD-2009-BP-05646BP

PATIENT
  Sex: Female

DRUGS (10)
  1. MIRAPEX [Suspect]
     Indication: RESTLESS LEGS SYNDROME
  2. HUMALOG [Concomitant]
  3. LANTUS [Concomitant]
  4. BENICAR [Concomitant]
  5. VITAMIN B-12 [Concomitant]
  6. PRAVACHOL [Concomitant]
  7. PRILOSEC [Concomitant]
  8. SYNTHROID [Concomitant]
  9. DETROL [Concomitant]
  10. LEVOTHYROXINE SODIUM [Concomitant]

REACTIONS (1)
  - DRUG INEFFECTIVE [None]
